FAERS Safety Report 7248468-X (Version None)
Quarter: 2011Q1

REPORT INFORMATION
  Report Type: 
  Country: None (occurrence: None)
  Receive Date: 20110127
  Receipt Date: 20110120
  Transmission Date: 20110831
  Serious: Yes (Hospitalization)
  Sender: FDA-Public Use
  Company Number: US-US-EMD SERONO, INC.-7031536

PATIENT
  Sex: Female

DRUGS (5)
  1. REBIF [Suspect]
     Indication: MULTIPLE SCLEROSIS
     Route: 058
     Dates: start: 20051209
  2. WATER PILL [Concomitant]
     Indication: HYPERTENSION
  3. LISINOPRIL [Concomitant]
     Indication: HYPERTENSION
  4. UNSPECIFIED BLOOD PRESSURE PILL [Concomitant]
     Indication: HYPERTENSION
  5. METFORMIN [Concomitant]
     Indication: DIABETES MELLITUS

REACTIONS (6)
  - INJECTION SITE ERYTHEMA [None]
  - COLON CANCER [None]
  - NIGHT SWEATS [None]
  - ASTHENIA [None]
  - POST PROCEDURAL COMPLICATION [None]
  - PAIN [None]
